FAERS Safety Report 5779600-2 (Version None)
Quarter: 2008Q2

REPORT INFORMATION
  Report Type: 
  Country: None (occurrence: None)
  Receive Date: 20080619
  Receipt Date: 20080313
  Transmission Date: 20081010
  Serious: No
  Sender: FDA-Public Use
  Company Number: US-ASTRAZENECA-2008UW05130

PATIENT
  Sex: Female

DRUGS (1)
  1. ATACAND HCT [Suspect]
     Indication: HYPERTENSION
     Route: 048

REACTIONS (6)
  - BURNING SENSATION [None]
  - HEADACHE [None]
  - ILL-DEFINED DISORDER [None]
  - SKIN TIGHTNESS [None]
  - SPEECH DISORDER [None]
  - VISUAL DISTURBANCE [None]
